FAERS Safety Report 25386863 (Version 3)
Quarter: 2025Q4

REPORT INFORMATION
  Report Type: Spontaneous
  Country: US (occurrence: None)
  Receive Date: 20250602
  Receipt Date: 20251125
  Transmission Date: 20260117
  Serious: Yes (Other)
  Sender: UCB
  Company Number: US-UCBSA-2025031902

PATIENT
  Age: 60 Year
  Weight: 63.5 kg

DRUGS (1)
  1. BIMZELX [Suspect]
     Active Substance: BIMEKIZUMAB-BKZX
     Indication: Psoriatic arthropathy
     Dosage: 160 MILLIGRAM, EV 4 WEEKS

REACTIONS (7)
  - Psoriatic arthropathy [Unknown]
  - Fall [Unknown]
  - Limb injury [Unknown]
  - Wound infection [Unknown]
  - Tooth infection [Unknown]
  - Urinary tract infection [Unknown]
  - Drug ineffective [Unknown]
